FAERS Safety Report 4951103-4 (Version None)
Quarter: 2006Q1

REPORT INFORMATION
  Report Type: 
  Country: None (occurrence: None)
  Receive Date: 20060317
  Receipt Date: 20060313
  Transmission Date: 20060701
  Serious: No
  Sender: FDA-Public Use
  Company Number: NO-2006-005789

PATIENT
  Age: 41 Year

DRUGS (1)
  1. LEVONORGESTREL [Suspect]
     Indication: MENSTRUAL DISORDER
     Dosage: 20 UG/DAY, CONT, INTRA-UTERINE
     Route: 015
     Dates: start: 20041101, end: 20050101

REACTIONS (3)
  - CONDITION AGGRAVATED [None]
  - ENDOMETRIAL HYPERTROPHY [None]
  - MENSTRUAL DISORDER [None]
